FAERS Safety Report 9159495 (Version 1)
Quarter: 2013Q1

REPORT INFORMATION
  Report Type: Spontaneous
  Country: US (occurrence: None)
  Receive Date: 20130214
  Receipt Date: 20130214
  Transmission Date: 20140127
  Serious: Yes (Hospitalization)
  Sender: FDA-Public Use
  Company Number: A1011646A

PATIENT
  Age: 79 Year
  Sex: Male

DRUGS (4)
  1. CALCIUM CARBONATE (FORMULATION UNKNOWN) (CALCIUM CARBONATE) [Suspect]
     Indication: GASTROOESOPHAGEAL REFLUX DISEASE
  2. LOSARTAN POTASSIUM [Concomitant]
  3. RANITIDINE HYDROCHLORIDE [Concomitant]
  4. PANTOPRAZOLE [Concomitant]

REACTIONS (7)
  - Renal failure [None]
  - Constipation [None]
  - Blood potassium increased [None]
  - Hypercalcaemia [None]
  - Kidney small [None]
  - Asthenia [None]
  - Off label use [None]
